FAERS Safety Report 10026146 (Version 1)
Quarter: 2014Q1

REPORT INFORMATION
  Report Type: Spontaneous
  Country: US (occurrence: US)
  Receive Date: 20140320
  Receipt Date: 20140320
  Transmission Date: 20141002
  Serious: No
  Sender: FDA-Public Use
  Company Number: US-ALLERGAN-1402747US

PATIENT
  Sex: Male

DRUGS (2)
  1. LUMIGAN 0.01% [Suspect]
     Indication: PRODUCT USED FOR UNKNOWN INDICATION
     Dosage: ONE DROP IN EACH EYE PRIOR TO BEDTIME
     Route: 047
     Dates: start: 201307
  2. LATANOPROST [Concomitant]
     Indication: PRODUCT USED FOR UNKNOWN INDICATION

REACTIONS (1)
  - Ocular hyperaemia [Unknown]
